FAERS Safety Report 8316658 (Version 2)
Quarter: 2012Q4

REPORT INFORMATION
  Report Type: 
  Country: FR (occurrence: FR)
  Receive Date: 20111230
  Receipt Date: 20121030
  Transmission Date: 20130627
  Serious: Yes (Hospitalization)
  Sender: FDA-Public Use
  Company Number: FR-MYLANLABS-2011S1026101

PATIENT
  Age: 55 Year
  Sex: Male

DRUGS (3)
  1. FLUOROURACIL [Suspect]
     Indication: HEAD AND NECK CANCER
     Dosage: Total dose 6150mg
     Route: 065
  2. DOCETAXEL [Concomitant]
     Indication: HEAD AND NECK CANCER
     Route: 065
  3. CISPLATIN [Concomitant]
     Indication: HEAD AND NECK CANCER
     Route: 065

REACTIONS (3)
  - Convulsion [Recovered/Resolved]
  - Loss of consciousness [Recovered/Resolved]
  - Neutropenia [Recovered/Resolved]
